FAERS Safety Report 8346207-2 (Version None)
Quarter: 2012Q1

REPORT INFORMATION
  Report Type: 
  Country: None (occurrence: None)
  Receive Date: 20120315
  Receipt Date: 20110517
  Transmission Date: 20120608
  Serious: No
  Sender: FDA-Public Use
  Company Number: PHHY2011US37949

PATIENT
  Age: 51 Year
  Sex: Female
  Weight: 120 kg

DRUGS (5)
  1. LISINOPRIL [Concomitant]
  2. VOLTAREN (DICLOFENAC DIETHYLAMINE) [Concomitant]
  3. GABAPENTIN [Concomitant]
  4. GILENYA [Suspect]
     Indication: MULTIPLE SCLEROSIS
     Dosage: 0.5 MG, QD, ORAL
     Route: 048
     Dates: start: 20110103, end: 20110330
  5. DIOVAN [Concomitant]

REACTIONS (3)
  - NAUSEA [None]
  - AGITATION [None]
  - TREMOR [None]
